FAERS Safety Report 11699932 (Version 1)
Quarter: 2015Q4

REPORT INFORMATION
  Report Type: Spontaneous
  Country: GB (occurrence: GB)
  Receive Date: 20151105
  Receipt Date: 20151105
  Transmission Date: 20160304
  Serious: Yes (Other)
  Sender: FDA-Public Use
  Company Number: GB-DRREDDYS-GER/UKI/15/0053806

PATIENT
  Age: 59 Year
  Sex: Male
  Weight: 78 kg

DRUGS (2)
  1. OMEPRAZOLE 40MG CAPSULES [Suspect]
     Active Substance: OMEPRAZOLE
     Indication: GASTROOESOPHAGEAL REFLUX DISEASE
     Route: 048
     Dates: start: 20150215, end: 20151005
  2. OMEPRAZOLE 40MG CAPSULES [Suspect]
     Active Substance: OMEPRAZOLE
     Route: 048
     Dates: start: 2010

REACTIONS (1)
  - Polyuria [Recovered/Resolved]

NARRATIVE: CASE EVENT DATE: 2015
